FAERS Safety Report 5787831-0 (Version None)
Quarter: 2008Q2

REPORT INFORMATION
  Report Type: 
  Country: None (occurrence: None)
  Receive Date: 20080625
  Receipt Date: 20080623
  Transmission Date: 20081010
  Serious: Yes (Death, Life-Threatening)
  Sender: FDA-Public Use
  Company Number: PHHY2008NL11724

PATIENT

DRUGS (11)
  1. DIOVAN [Suspect]
     Indication: HYPERTENSION
     Dosage: 80 MG, DAILY
  2. BACLOFEN [Suspect]
     Dosage: 10 MG, TID
  3. HYDROCHLOROTHIAZIDE [Suspect]
     Indication: HYPERTENSION
     Dosage: 25 MG, DAILY
  4. AMLODIPINE [Suspect]
     Indication: HYPERTENSION
     Dosage: 5 MG, DAILY
  5. CLONAZEPAM [Suspect]
     Indication: HYPOTONIA
     Dosage: 1 DF, BID
  6. AMITRIPTYLINE HCL [Suspect]
     Indication: DEPRESSION
     Dosage: 10 MG, TID2SDO
  7. AMITRIPTYLINE HCL [Suspect]
     Dosage: 25 MG, QD
  8. SAROTEX RETARD [Suspect]
     Indication: DEPRESSION
     Dosage: 25 MG, QD
  9. METOPROLOL TARTRATE [Suspect]
     Indication: HYPERTENSION
     Dosage: 100 MG, QD
  10. TRANSTEC [Suspect]
     Indication: PAIN
     Dosage: 20 MG(ONCE DAILY 0.5 PATCH)
  11. ZOFRAN [Suspect]
     Dosage: 2ML AMPOULE ONCE DAILY

REACTIONS (1)
  - COMA [None]
